FAERS Safety Report 21015603 (Version 5)
Quarter: 2022Q4

REPORT INFORMATION
  Report Type: Report from Study
  Country: US (occurrence: US)
  Receive Date: 20220628
  Receipt Date: 20221121
  Transmission Date: 20230113
  Serious: Yes (Hospitalization)
  Sender: FDA-Public Use
  Company Number: US-NOVARTISPH-NVSC2022US145505

PATIENT
  Sex: Female
  Weight: 84.807 kg

DRUGS (6)
  1. TREPROSTINIL [Suspect]
     Active Substance: TREPROSTINIL
     Indication: Pulmonary arterial hypertension
     Dosage: 95 NG/KG/MIN, CONT
     Route: 042
     Dates: start: 20190628
  2. TREPROSTINIL [Suspect]
     Active Substance: TREPROSTINIL
     Dosage: 89 NG/KG/MIN, CONT
     Route: 042
  3. TREPROSTINIL [Suspect]
     Active Substance: TREPROSTINIL
     Dosage: 85 NG/KG/MIN, CONT
     Route: 042
  4. ADEMPAS [Suspect]
     Active Substance: RIOCIGUAT
     Indication: Product used for unknown indication
     Dosage: UNK
     Route: 065
  5. ADEMPAS [Suspect]
     Active Substance: RIOCIGUAT
     Dosage: 0.5 MG, TID (DOSE REDUCED)
     Route: 065
  6. ADEMPAS [Suspect]
     Active Substance: RIOCIGUAT
     Dosage: 2 MG
     Route: 065
     Dates: start: 20220720

REACTIONS (5)
  - Sepsis [Unknown]
  - Hypotension [Unknown]
  - Sluggishness [Unknown]
  - Lethargy [Unknown]
  - Seasonal allergy [Unknown]
